FAERS Safety Report 9130093 (Version 3)
Quarter: 2013Q3

REPORT INFORMATION
  Report Type: Report from Study
  Country: FR (occurrence: FR)
  Receive Date: 20130228
  Receipt Date: 20130905
  Transmission Date: 20140515
  Serious: Yes (Death, Hospitalization, Other)
  Sender: FDA-Public Use
  Company Number: FR-ROCHE-1195294

PATIENT
  Age: 17 Year
  Sex: Male
  Weight: 51 kg

DRUGS (8)
  1. RITUXIMAB [Suspect]
     Indication: NON-HODGKIN^S LYMPHOMA
     Route: 042
     Dates: start: 20121127
  2. RITUXIMAB [Suspect]
     Route: 042
     Dates: start: 20130208
  3. CYTARABINE [Suspect]
     Indication: B-CELL LYMPHOMA
     Route: 042
     Dates: start: 20130209
  4. CYTARABINE [Suspect]
     Route: 042
     Dates: start: 20130210, end: 20130213
  5. ETOPOSIDE [Suspect]
     Indication: B-CELL LYMPHOMA
     Route: 042
     Dates: start: 20130210, end: 20130213
  6. AMBISOME [Concomitant]
     Route: 042
     Dates: start: 20130125
  7. MORPHINE [Concomitant]
     Dosage: 1 MG/H
     Route: 042
     Dates: start: 20130210
  8. DOLOSAL [Concomitant]
     Route: 042
     Dates: start: 20130216

REACTIONS (6)
  - Cerebellar syndrome [Not Recovered/Not Resolved]
  - Confusional state [Not Recovered/Not Resolved]
  - Intestinal haemorrhage [Not Recovered/Not Resolved]
  - Thrombocytopenia [Not Recovered/Not Resolved]
  - Febrile neutropenia [Not Recovered/Not Resolved]
  - Pseudomonal sepsis [Fatal]
